FAERS Safety Report 4553869-4 (Version None)
Quarter: 2005Q1

REPORT INFORMATION
  Report Type: 
  Country: None (occurrence: None)
  Receive Date: 20050113
  Receipt Date: 20050113
  Transmission Date: 20050727
  Serious: No
  Sender: FDA-Public Use
  Company Number: None

PATIENT
  Sex: Male
  Weight: 104.5 kg

DRUGS (12)
  1. CUBICIN [Suspect]
     Indication: CELLULITIS
     Dosage: 600 MG Q 24 H IV
     Route: 042
     Dates: start: 20041228, end: 20050104
  2. HEPARIN [Concomitant]
  3. SODIUM CHLORIDE [Concomitant]
  4. VICODIN [Concomitant]
  5. TRICOR [Concomitant]
  6. METFORMIN HCL [Concomitant]
  7. ACTOS [Concomitant]
  8. LOTENSIN [Concomitant]
  9. PREVACID [Concomitant]
  10. GLIPIZIDE [Concomitant]
  11. NPH INSULIN [Concomitant]
  12. REGULAR INSULIN [Concomitant]

REACTIONS (3)
  - BLOOD CREATINE PHOSPHOKINASE INCREASED [None]
  - MUSCLE STRAIN [None]
  - PAIN IN EXTREMITY [None]
